FAERS Safety Report 9113379 (Version 3)
Quarter: 2013Q4

REPORT INFORMATION
  Report Type: Spontaneous
  Country: US (occurrence: US)
  Receive Date: 20130201
  Receipt Date: 20131017
  Transmission Date: 20140711
  Serious: Yes (Other)
  Sender: FDA-Public Use
  Company Number: US-009507513-1301USA014644

PATIENT
  Sex: Female
  Weight: 62.59 kg

DRUGS (1)
  1. FOSAMAX [Suspect]
     Indication: OSTEOPOROSIS
     Dosage: 70 MG, QW
     Route: 048
     Dates: start: 200310, end: 201003

REACTIONS (10)
  - Femur fracture [Unknown]
  - Intramedullary rod insertion [Unknown]
  - Humerus fracture [Unknown]
  - Femur fracture [Not Recovered/Not Resolved]
  - Low turnover osteopathy [Unknown]
  - Fracture [Unknown]
  - Osteoarthritis [Unknown]
  - Ligament pain [Unknown]
  - Local swelling [Unknown]
  - Pain in extremity [Unknown]
